FAERS Safety Report 21173951 (Version 1)
Quarter: 2022Q3

REPORT INFORMATION
  Report Type: Spontaneous
  Country: US (occurrence: US)
  Receive Date: 20220804
  Receipt Date: 20220804
  Transmission Date: 20221027
  Serious: No
  Sender: FDA-Public Use
  Company Number: US-ABBVIE-21K-163-4155004-00

PATIENT
  Age: 36 Year
  Sex: Male

DRUGS (3)
  1. DEPAKOTE ER [Suspect]
     Active Substance: DIVALPROEX SODIUM
     Indication: Mania
     Route: 048
     Dates: start: 20211101, end: 202111
  2. DEPAKOTE ER [Suspect]
     Active Substance: DIVALPROEX SODIUM
     Indication: Bipolar disorder
     Route: 048
     Dates: start: 20211103, end: 202111
  3. DEPAKOTE ER [Suspect]
     Active Substance: DIVALPROEX SODIUM
     Route: 048
     Dates: start: 20211105, end: 202111

REACTIONS (3)
  - Medication error [Unknown]
  - Alcohol problem [Unknown]
  - Palpitations [Unknown]

NARRATIVE: CASE EVENT DATE: 20211101
